FAERS Safety Report 4294363-8 (Version None)
Quarter: 2004Q1

REPORT INFORMATION
  Report Type: 
  Country: None (occurrence: None)
  Receive Date: 20040211
  Receipt Date: 20040122
  Transmission Date: 20041129
  Serious: Yes (Other)
  Sender: FDA-Public Use
  Company Number: USA040157373

PATIENT
  Age: 82 Year
  Sex: Female

DRUGS (4)
  1. EVISTA [Suspect]
     Indication: INTERVERTEBRAL DISC COMPRESSION
     Dates: start: 20031101
  2. LEXAPRO [Concomitant]
  3. NEXIUM [Concomitant]
  4. CITRACAL + D [Concomitant]

REACTIONS (4)
  - ALOPECIA [None]
  - BURSA DISORDER [None]
  - SPINAL COLUMN STENOSIS [None]
  - SPINAL FRACTURE [None]
